FAERS Safety Report 17590962 (Version 1)
Quarter: 2020Q1

REPORT INFORMATION
  Report Type: Report from Study
  Country: US (occurrence: US)
  Receive Date: 20200327
  Receipt Date: 20200327
  Transmission Date: 20200409
  Serious: Yes (Hospitalization)
  Sender: FDA-Public Use
  Company Number: PHHO2017US008132

PATIENT
  Age: 34 Year
  Sex: Male
  Weight: 58.8 kg

DRUGS (5)
  1. PREDNISONE TABLETS USP [Suspect]
     Active Substance: PREDNISONE
     Indication: GRAFT VERSUS HOST DISEASE
     Dosage: 30 MG, BID
     Route: 048
     Dates: start: 20170330, end: 20170330
  2. METHYLPREDNISOLONE ACETATE. [Suspect]
     Active Substance: METHYLPREDNISOLONE ACETATE
     Indication: GRAFT VERSUS HOST DISEASE
     Dosage: 35 MG, BID
     Route: 042
     Dates: start: 20170217
  3. PREDNISONE TABLETS USP [Suspect]
     Active Substance: PREDNISONE
     Dosage: 60 MG, BID
     Route: 048
     Dates: start: 20170331
  4. METHYLPREDNISOLONE ACETATE. [Suspect]
     Active Substance: METHYLPREDNISOLONE ACETATE
     Dosage: 70 UNK
     Route: 042
     Dates: start: 20170328, end: 20170329
  5. INC424A [Suspect]
     Active Substance: RUXOLITINIB
     Indication: GRAFT VERSUS HOST DISEASE
     Dosage: 10 MG, BID
     Route: 048
     Dates: start: 20170317

REACTIONS (1)
  - Cystitis [Recovered/Resolved]

NARRATIVE: CASE EVENT DATE: 20170330
